FAERS Safety Report 5199559-9 (Version None)
Quarter: 2007Q1

REPORT INFORMATION
  Report Type: 
  Country: None (occurrence: None)
  Receive Date: 20070105
  Receipt Date: 20061127
  Transmission Date: 20070707
  Serious: Yes (Hospitalization)
  Sender: FDA-Public Use
  Company Number: SG-RB-004514-06

PATIENT

DRUGS (1)
  1. SUBUTEX [Suspect]
     Dosage: DOSAGE UNKNOWN
     Route: 042

REACTIONS (3)
  - DRUG ABUSER [None]
  - GANGRENE [None]
  - PERIPHERAL ISCHAEMIA [None]
